FAERS Safety Report 16575066 (Version 1)
Quarter: 2019Q3

REPORT INFORMATION
  Report Type: Spontaneous
  Country: US (occurrence: US)
  Receive Date: 20190715
  Receipt Date: 20190715
  Transmission Date: 20191004
  Serious: No
  Sender: FDA-Public Use
  Company Number: US-TEVA-2019-US-1077853

PATIENT
  Age: 38 Year
  Sex: Male

DRUGS (8)
  1. PRIMIDONE. [Suspect]
     Active Substance: PRIMIDONE
     Indication: TREMOR
     Dosage: 50 MILLIGRAM DAILY; RECEIVED PRIMIDONE AT NIGHT AND THEN 3 TIMES PER DAY
     Route: 065
  2. CLONAZEPAM. [Suspect]
     Active Substance: CLONAZEPAM
     Indication: TREMOR
     Dosage: .25 MILLIGRAM DAILY; RECEIVED CLONAZEPAM AT NIGHT
     Route: 065
  3. PROPRANOLOL [Suspect]
     Active Substance: PROPRANOLOL HYDROCHLORIDE
     Indication: TREMOR
     Dosage: 60 MILLIGRAM DAILY; 20 MG, 3 TIMES PER DAY
     Route: 065
  4. PRIMIDONE. [Suspect]
     Active Substance: PRIMIDONE
     Dosage: 150 MILLIGRAM DAILY; 50 MG, 3 TIMES PER DAY
     Route: 065
  5. AMANTADINE. [Suspect]
     Active Substance: AMANTADINE HYDROCHLORIDE
     Indication: TREMOR
     Dosage: 200 MILLIGRAM DAILY; RECEIVED AMANTADINE AT MORNING AND NOON
     Route: 065
  6. PROPRANOLOL [Suspect]
     Active Substance: PROPRANOLOL HYDROCHLORIDE
     Dosage: 60 MG, 3 TIMES PER DAY
     Route: 065
  7. CLONAZEPAM. [Suspect]
     Active Substance: CLONAZEPAM
     Dosage: .5 MILLIGRAM DAILY; RECEIVED CLONAZEPAM AT NIGHT
     Route: 065
  8. CLONAZEPAM. [Suspect]
     Active Substance: CLONAZEPAM
     Dosage: .5 MILLIGRAM DAILY;
     Route: 065

REACTIONS (2)
  - Off label use [Unknown]
  - Constipation [Unknown]
